FAERS Safety Report 7940791-6 (Version None)
Quarter: 2011Q4

REPORT INFORMATION
  Report Type: 
  Country: None (occurrence: None)
  Receive Date: 20111128
  Receipt Date: 20111123
  Transmission Date: 20120403
  Serious: Yes (Hospitalization, Congenital Anomaly, Other)
  Sender: FDA-Public Use
  Company Number: US-PFIZER INC-2010109636

PATIENT
  Sex: Female
  Weight: 3 kg

DRUGS (4)
  1. ATENOLOL [Concomitant]
     Indication: HEART RATE INCREASED
     Dosage: 50 MG, UNK
     Route: 064
  2. SYNTHROID [Concomitant]
     Indication: THYROID DISORDER
     Dosage: 50 MG, 1X/DAY
     Route: 064
  3. ETHINYL ESTRADIOL [Concomitant]
     Route: 064
  4. ZOLOFT [Suspect]
     Indication: DEPRESSED MOOD
     Dosage: UNK
     Route: 064

REACTIONS (50)
  - BRONCHITIS [None]
  - JAUNDICE NEONATAL [None]
  - OSTEOPENIA [None]
  - BRONCHIAL HYPERREACTIVITY [None]
  - LOBAR PNEUMONIA [None]
  - RHINITIS ALLERGIC [None]
  - CARDIOMEGALY [None]
  - SPEECH DISORDER DEVELOPMENTAL [None]
  - DEHYDRATION [None]
  - HEART DISEASE CONGENITAL [None]
  - COLITIS [None]
  - MICRODACTYLY [None]
  - CONGENITAL HYPERTHYROIDISM [None]
  - CARDIAC FAILURE CONGESTIVE [None]
  - MATERNAL DRUGS AFFECTING FOETUS [None]
  - PYREXIA [None]
  - DEAFNESS NEUROSENSORY [None]
  - OTITIS EXTERNA [None]
  - DERMATITIS CONTACT [None]
  - HYPERMETROPIA [None]
  - RIGHT VENTRICULAR HYPERTROPHY [None]
  - ASTHMA [None]
  - ATELECTASIS [None]
  - INFLUENZA [None]
  - OTITIS MEDIA [None]
  - CLAVICLE FRACTURE [None]
  - CELLULITIS [None]
  - SYNDACTYLY [None]
  - ELECTROCARDIOGRAM ST SEGMENT DEPRESSION [None]
  - LUNG DISORDER [None]
  - BUNDLE BRANCH BLOCK RIGHT [None]
  - ELECTROCARDIOGRAM T WAVE ABNORMAL [None]
  - FOETAL EXPOSURE DURING PREGNANCY [None]
  - ATRIAL SEPTAL DEFECT [None]
  - EYELID PTOSIS CONGENITAL [None]
  - SENSORY DISTURBANCE [None]
  - LUNG HYPERINFLATION [None]
  - PATENT DUCTUS ARTERIOSUS [None]
  - NEONATAL RESPIRATORY DISTRESS SYNDROME [None]
  - TRANSIENT TACHYPNOEA OF THE NEWBORN [None]
  - GASTROENTERITIS ROTAVIRUS [None]
  - EAR INFECTION [None]
  - VOMITING [None]
  - VESTIBULAR DISORDER [None]
  - NEONATAL TACHYCARDIA [None]
  - VENTRICULAR SEPTAL DEFECT [None]
  - HYPOGLYCAEMIA NEONATAL [None]
  - BRONCHIOLITIS [None]
  - LOWER RESPIRATORY TRACT INFECTION [None]
  - RESPIRATORY DISORDER [None]
